FAERS Safety Report 25242875 (Version 2)
Quarter: 2025Q2

REPORT INFORMATION
  Report Type: Spontaneous
  Country: SG (occurrence: SG)
  Receive Date: 20250427
  Receipt Date: 20250501
  Transmission Date: 20250716
  Serious: Yes (Hospitalization, Other)
  Sender: ORGANON
  Company Number: SG-ORGANON-O2504SGP002689

PATIENT
  Sex: Male

DRUGS (1)
  1. MOMETASONE FUROATE [Suspect]
     Active Substance: MOMETASONE FUROATE

REACTIONS (4)
  - Eczema [Recovering/Resolving]
  - Steroid withdrawal syndrome [Unknown]
  - Sleep disorder [Recovering/Resolving]
  - General physical health deterioration [Recovering/Resolving]
